FAERS Safety Report 22261920 (Version 5)
Quarter: 2024Q2

REPORT INFORMATION
  Report Type: Report from Study
  Country: US (occurrence: US)
  Receive Date: 20230428
  Receipt Date: 20240422
  Transmission Date: 20240716
  Serious: No
  Sender: FDA-Public Use
  Company Number: US-002147023-NVSC2023US094573

PATIENT
  Age: 62 Year
  Sex: Female

DRUGS (2)
  1. COSENTYX [Suspect]
     Active Substance: SECUKINUMAB
     Indication: Psoriatic arthropathy
     Dosage: 300 MG, QMO
     Route: 058
     Dates: start: 20210501, end: 20220101
  2. COSENTYX [Suspect]
     Active Substance: SECUKINUMAB
     Dosage: 300 MG, QMO
     Route: 065
     Dates: start: 20230829

REACTIONS (6)
  - Skin plaque [Unknown]
  - Pain [Unknown]
  - Skin lesion [Unknown]
  - Staphylococcal infection [Unknown]
  - Fungal infection [Unknown]
  - Infection [Unknown]

NARRATIVE: CASE EVENT DATE: 20221201
